FAERS Safety Report 18242105 (Version 1)
Quarter: 2020Q3

REPORT INFORMATION
  Report Type: Spontaneous
  Country: US (occurrence: US)
  Receive Date: 20200908
  Receipt Date: 20200908
  Transmission Date: 20201103
  Serious: Yes (Other)
  Sender: FDA-Public Use
  Company Number: None

PATIENT
  Age: 40 Year
  Sex: Female
  Weight: 103.5 kg

DRUGS (4)
  1. SALMON [Suspect]
     Active Substance: SALMON, UNSPECIFIED
  2. LAVENDER [Suspect]
     Active Substance: ALCOHOL
  3. MINOCYCLINE [Suspect]
     Active Substance: MINOCYCLINE HYDROCHLORIDE
  4. MOBIC [Suspect]
     Active Substance: MELOXICAM

REACTIONS (3)
  - Heart rate increased [None]
  - Hypertension [None]
  - Dyspnoea [None]

NARRATIVE: CASE EVENT DATE: 20200904
